FAERS Safety Report 21350868 (Version 3)
Quarter: 2023Q2

REPORT INFORMATION
  Report Type: Spontaneous
  Country: GR (occurrence: GR)
  Receive Date: 20220919
  Receipt Date: 20230503
  Transmission Date: 20230721
  Serious: Yes (Hospitalization, Other)
  Sender: FDA-Public Use
  Company Number: GR-MYLANLABS-2022M1093900

PATIENT
  Age: 63 Year
  Sex: Female

DRUGS (5)
  1. IBUPROFEN [Suspect]
     Active Substance: IBUPROFEN
     Indication: Pyrexia
     Dosage: UNK
     Route: 065
  2. IBUPROFEN [Suspect]
     Active Substance: IBUPROFEN
     Indication: Malaise
  3. IBUPROFEN [Suspect]
     Active Substance: IBUPROFEN
     Indication: Oropharyngeal pain
  4. IBUPROFEN [Suspect]
     Active Substance: IBUPROFEN
     Indication: Renal pain
  5. PREDNISONE [Concomitant]
     Active Substance: PREDNISONE
     Indication: Product used for unknown indication
     Dosage: UNK, REDUCTION REGIMEN
     Route: 065

REACTIONS (10)
  - Renal pain [Recovered/Resolved]
  - Renal impairment [Recovered/Resolved]
  - Hypokalaemia [Recovered/Resolved]
  - Tubulointerstitial nephritis [Recovered/Resolved]
  - Acute kidney injury [Recovered/Resolved]
  - Albuminuria [Recovered/Resolved]
  - Haematuria [Recovered/Resolved]
  - Urinary tract disorder [Recovered/Resolved]
  - Inflammatory marker increased [Recovered/Resolved]
  - Sterile pyuria [Recovered/Resolved]
